FAERS Safety Report 5167288-3 (Version None)
Quarter: 2006Q4

REPORT INFORMATION
  Report Type: 
  Country: None (occurrence: None)
  Receive Date: 20061130
  Receipt Date: 20061117
  Transmission Date: 20070319
  Serious: Yes (Other)
  Sender: FDA-Public Use
  Company Number: 2006SP006880

PATIENT
  Sex: Male
  Weight: 104.3273 kg

DRUGS (7)
  1. PEG-INTRON [Suspect]
     Indication: HEPATITIS C
     Dates: start: 20060810
  2. REBETOL [Suspect]
     Indication: HEPATITIS C
     Dosage: PO
     Route: 048
     Dates: start: 20060810
  3. ADVAIR DISKUS 100/50 [Concomitant]
  4. ALBUTEROL SULATE [Concomitant]
  5. CAMPRAL [Concomitant]
  6. COMBIVENT [Concomitant]
  7. RANITIDINE HYDROCHLORIDE [Concomitant]

REACTIONS (7)
  - DYSPHAGIA [None]
  - DYSPNOEA [None]
  - HAEMOGLOBIN DECREASED [None]
  - PHARYNGEAL ULCERATION [None]
  - RECTAL HAEMORRHAGE [None]
  - TONGUE DISORDER [None]
  - WEIGHT DECREASED [None]
